FAERS Safety Report 9223194 (Version 1)
Quarter: 2013Q2

REPORT INFORMATION
  Report Type: Spontaneous
  Country: US (occurrence: None)
  Receive Date: 20130409
  Receipt Date: 20130409
  Transmission Date: 20140414
  Serious: Yes (Death, Life-Threatening)
  Sender: FDA-Public Use
  Company Number: None

PATIENT
  Age: 92 Year
  Sex: Female
  Weight: 94.5 kg

DRUGS (2)
  1. SUTENT [Suspect]
     Indication: METASTATIC RENAL CELL CARCINOMA
     Dosage: 37.5 MG DAILY PO
     Route: 048
     Dates: start: 20130214, end: 20130305
  2. SUTENT [Suspect]

REACTIONS (4)
  - Bleeding time prolonged [None]
  - Haematochezia [None]
  - Large intestinal haemorrhage [None]
  - Small intestinal haemorrhage [None]
